FAERS Safety Report 12166009 (Version 1)
Quarter: 2016Q1

REPORT INFORMATION
  Report Type: Spontaneous
  Country: US (occurrence: US)
  Receive Date: 20160309
  Receipt Date: 20160309
  Transmission Date: 20160526
  Serious: Yes (Other)
  Sender: FDA-Public Use
  Company Number: US-ACORDA-ACO_121701_2016

PATIENT
  Age: 42 Year
  Sex: Female
  Weight: 59.41 kg

DRUGS (2)
  1. TYLENOL [Concomitant]
     Active Substance: ACETAMINOPHEN
     Indication: PRODUCT USED FOR UNKNOWN INDICATION
  2. AMPYRA [Suspect]
     Active Substance: DALFAMPRIDINE
     Indication: MULTIPLE SCLEROSIS
     Dosage: 10 MG, BID
     Route: 048
     Dates: start: 201407, end: 201410

REACTIONS (5)
  - Multiple sclerosis relapse [Unknown]
  - Depression [Unknown]
  - Mobility decreased [Unknown]
  - Impaired work ability [Unknown]
  - Walking aid user [Unknown]

NARRATIVE: CASE EVENT DATE: 20151110
